FAERS Safety Report 12283324 (Version 2)
Quarter: 2016Q2

REPORT INFORMATION
  Report Type: Spontaneous
  Country: US (occurrence: US)
  Receive Date: 20160419
  Receipt Date: 20160503
  Transmission Date: 20160815
  Serious: Yes (Hospitalization, Other)
  Sender: FDA-Public Use
  Company Number: US-MDT-ADR-2016-00153

PATIENT
  Age: 45 Year
  Sex: Male

DRUGS (17)
  1. RITALIN [Concomitant]
     Active Substance: METHYLPHENIDATE HYDROCHLORIDE
  2. CALCIUM [Concomitant]
     Active Substance: CALCIUM
  3. ZANTAC [Concomitant]
     Active Substance: RANITIDINE HYDROCHLORIDE
  4. DULCOLAX NOS [Concomitant]
     Active Substance: BISACODYL OR DOCUSATE SODIUM
  5. VITAMIN D [Concomitant]
     Active Substance: CHOLECALCIFEROL
  6. MILK OF MAGNESIA [Concomitant]
     Active Substance: MAGNESIUM HYDROXIDE
  7. BACLOFEN. [Concomitant]
     Active Substance: BACLOFEN
  8. VITAMIN B COMPLEX [Concomitant]
     Active Substance: CYANOCOBALAMIN\DEXPANTHENOL\NIACINAMIDE\PYRIDOXINE HYDROCHLORIDE\RIBOFLAVIN 5^-PHOSPHATE SODIUM\THIAMINE HYDROCHLORIDE\VITAMIN B COMPLEX
  9. THERATEARS [Concomitant]
     Active Substance: CARBOXYMETHYLCELLULOSE SODIUM
  10. BACLOFEN. [Concomitant]
     Active Substance: BACLOFEN
  11. ALLEGRA [Concomitant]
     Active Substance: FEXOFENADINE HYDROCHLORIDE
  12. VITAMIN C [Concomitant]
     Active Substance: ASCORBIC ACID
  13. ASPIRIN. [Concomitant]
     Active Substance: ASPIRIN
  14. CEROVITE [Concomitant]
     Active Substance: FOLIC ACID\IRON
  15. IBUPROFEN. [Concomitant]
     Active Substance: IBUPROFEN
  16. BACLOFEN. [Suspect]
     Active Substance: BACLOFEN
     Route: 037
  17. ROBITUSSIN (GUAIFENESIN) [Concomitant]
     Active Substance: GUAIFENESIN

REACTIONS (10)
  - Oral candidiasis [Unknown]
  - Bradycardia [Recovered/Resolved]
  - Medical device site discharge [Unknown]
  - Staphylococcal infection [Unknown]
  - Purulent discharge [Unknown]
  - Wound complication [Unknown]
  - Anaemia [Unknown]
  - Pseudomonas infection [Unknown]
  - Medical device site erythema [Unknown]
  - Medical device site infection [Unknown]
